FAERS Safety Report 21618171 (Version 1)
Quarter: 2022Q4

REPORT INFORMATION
  Report Type: Spontaneous
  Country: FR (occurrence: FR)
  Receive Date: 20221119
  Receipt Date: 20221119
  Transmission Date: 20230112
  Serious: Yes (Hospitalization)
  Sender: FDA-Public Use
  Company Number: FR-AFSSAPS-MP20223351

PATIENT
  Age: 87 Year
  Sex: Male
  Weight: 60.9 kg

DRUGS (11)
  1. VALACYCLOVIR [Suspect]
     Active Substance: VALACYCLOVIR HYDROCHLORIDE
     Indication: Product used for unknown indication
     Dosage: 500 MILLIGRAM,1 TAB OF 500MG AT 8 A.M. AND 1 TAB AT 8 P.M.
     Route: 065
     Dates: start: 20220103, end: 20220113
  2. LINEZOLID [Suspect]
     Active Substance: LINEZOLID
     Indication: Pneumonia
     Dosage: 600 MILLIGRAM,1 TAB OF 600MG AT 8 A.M. AND 1 AT 8 P.M.
     Route: 065
     Dates: start: 20220105, end: 20220119
  3. PIPERACILLIN SODIUM\TAZOBACTAM SODIUM [Suspect]
     Active Substance: PIPERACILLIN SODIUM\TAZOBACTAM SODIUM
     Indication: Pneumonia
     Dosage: 16 GRAM, ONCE A DAY
     Route: 065
     Dates: start: 20220103, end: 20220117
  4. VIDAZA [Suspect]
     Active Substance: AZACITIDINE
     Indication: Acute myeloid leukaemia
     Dosage: UNK
     Route: 065
     Dates: start: 202201
  5. VITAMINS [Suspect]
     Active Substance: VITAMINS
     Indication: Product used for unknown indication
     Dosage: UNK,50 DROPS AT 10 A.M.
     Route: 065
     Dates: start: 20211214, end: 20220113
  6. OXAZEPAM [Concomitant]
     Active Substance: OXAZEPAM
     Indication: Product used for unknown indication
     Dosage: 10 MILLIGRAM, ONCE A DAY,1 TAB OF 10MG AT BEDTIME
     Route: 065
  7. FUNGIZONE [Concomitant]
     Active Substance: AMPHOTERICIN B
     Indication: Product used for unknown indication
     Dosage: UNK,3 TIMES A DAY
     Route: 065
  8. PRIMPERAN [Concomitant]
     Active Substance: METOCLOPRAMIDE HYDROCHLORIDE
     Indication: Product used for unknown indication
     Dosage: 10 MILLIGRAM
     Route: 065
  9. FUROSEMIDE [Concomitant]
     Active Substance: FUROSEMIDE
     Indication: Product used for unknown indication
     Dosage: 40 MILLIGRAM,1 TABLET OF 40MG IN THE MORNING AND 1/2 TABLET AT NOON (TO BE RE-EVALUATED ACCORDING TO
     Route: 065
  10. POTASSIUM CHLORIDE [Concomitant]
     Active Substance: POTASSIUM CHLORIDE
     Indication: Product used for unknown indication
     Dosage: 1000 MILLIGRAM,2CP IN THE MORNING, 2 AT NOON AND 2 IN THE EVENING (TO BE RE-EVALUATED ACCORDING TO T
     Route: 065
  11. CALCIUM CARBONATE [Concomitant]
     Active Substance: CALCIUM CARBONATE
     Indication: Product used for unknown indication
     Dosage: UNK,1 SACHET AT 10 A.M. AND 1 SACHET AT 3 P.M.
     Route: 065

REACTIONS (3)
  - Hepatitis acute [Recovering/Resolving]
  - Diarrhoea [Recovering/Resolving]
  - Hepatic failure [Recovering/Resolving]

NARRATIVE: CASE EVENT DATE: 20220113
